FAERS Safety Report 4525854-X (Version None)
Quarter: 2004Q4

REPORT INFORMATION
  Report Type: 
  Country: None (occurrence: None)
  Receive Date: 20041124
  Receipt Date: 20031208
  Transmission Date: 20050328
  Serious: Yes (Other)
  Sender: FDA-Public Use
  Company Number: 2003122965

PATIENT
  Age: 69 Year
  Sex: Male
  Weight: 96.6162 kg

DRUGS (8)
  1. TIKOSYN [Suspect]
     Indication: ATRIAL FIBRILLATION
     Dosage: 1000 MCG (BID), ORAL
     Route: 048
     Dates: start: 20031202
  2. DIGOXIN [Concomitant]
  3. WARFARIN SODIUM [Concomitant]
  4. SOTALOL HCL [Concomitant]
  5. METOPROLOL TARTRATE [Concomitant]
  6. LINSEED OIL (LINSEED OIL) [Concomitant]
  7. SERENOA REPENS (SERENOA REPENS) [Concomitant]
  8. VITAMINS (VITAMINS) [Concomitant]

REACTIONS (4)
  - ATRIAL FLUTTER [None]
  - COUGH [None]
  - HEART RATE INCREASED [None]
  - NASOPHARYNGITIS [None]
